FAERS Safety Report 20101734 (Version 2)
Quarter: 2021Q4

REPORT INFORMATION
  Report Type: Spontaneous
  Country: US (occurrence: None)
  Receive Date: 20211123
  Receipt Date: 20211208
  Transmission Date: 20220303
  Serious: No
  Sender: FDA-Public Use
  Company Number: 2021A787434

PATIENT
  Age: 27880 Day
  Sex: Female
  Weight: 63.5 kg

DRUGS (4)
  1. BUDESONIDE\FORMOTEROL\GLYCOPYRRONIUM [Suspect]
     Active Substance: BUDESONIDE\FORMOTEROL\GLYCOPYRRONIUM
     Indication: Chronic obstructive pulmonary disease
     Dosage: 160/9/4.8 UG, 2 PUFFS TWICE A DAY
     Route: 055
     Dates: start: 20210507
  2. BUDESONIDE\FORMOTEROL\GLYCOPYRRONIUM [Suspect]
     Active Substance: BUDESONIDE\FORMOTEROL\GLYCOPYRRONIUM
     Indication: Asthma
     Dosage: 160/9/4.8 UG, 2 PUFFS TWICE A DAY
     Route: 055
     Dates: start: 20210507
  3. PULMICORT FLEXHALER [Concomitant]
     Active Substance: BUDESONIDE
     Indication: Chronic obstructive pulmonary disease
     Route: 055
     Dates: start: 20190302
  4. PULMICORT FLEXHALER [Concomitant]
     Active Substance: BUDESONIDE
     Indication: Asthma
     Route: 055
     Dates: start: 20190302

REACTIONS (4)
  - Dysphagia [Not Recovered/Not Resolved]
  - Product dose omission issue [Not Recovered/Not Resolved]
  - Product use issue [Not Recovered/Not Resolved]
  - Drug delivery system issue [Unknown]

NARRATIVE: CASE EVENT DATE: 20211021
